FAERS Safety Report 8487794-3 (Version None)
Quarter: 2012Q3

REPORT INFORMATION
  Report Type: 
  Country: None (occurrence: None)
  Receive Date: 20120705
  Receipt Date: 20120628
  Transmission Date: 20120928
  Serious: Yes (Other)
  Sender: FDA-Public Use
  Company Number: IT-PFIZER INC-2012144202

PATIENT
  Age: 59 Year
  Sex: Female

DRUGS (2)
  1. NOLVADEX [Concomitant]
     Dosage: UNK
     Dates: start: 20010101
  2. AROMASIN [Suspect]
     Indication: BREAST CANCER
     Dosage: UNK
     Dates: start: 20040901

REACTIONS (6)
  - LYMPHADENOPATHY [None]
  - HOT FLUSH [None]
  - BLOOD CHOLESTEROL INCREASED [None]
  - CARPAL TUNNEL SYNDROME [None]
  - ARTHRALGIA [None]
  - OSTEOPENIA [None]
